FAERS Safety Report 13554846 (Version 2)
Quarter: 2017Q2

REPORT INFORMATION
  Report Type: Spontaneous
  Country: DK (occurrence: DK)
  Receive Date: 20170517
  Receipt Date: 20170627
  Transmission Date: 20170830
  Serious: Yes (Death)
  Sender: FDA-Public Use
  Company Number: DK-SA-2017SA088381

PATIENT
  Sex: Male

DRUGS (15)
  1. JERN C [Concomitant]
     Indication: MINERAL SUPPLEMENTATION
     Route: 065
     Dates: start: 20170407
  2. SOLOSTAR [Concomitant]
     Active Substance: DEVICE
  3. TOUJEO [Suspect]
     Active Substance: INSULIN GLARGINE
     Route: 051
  4. SOLOSTAR [Concomitant]
     Active Substance: DEVICE
     Dates: start: 20160829
  5. FURIX [Concomitant]
     Active Substance: FUROSEMIDE
     Indication: DIURETIC THERAPY
     Dosage: 40 MG MG/ HALF TABLET X3
     Dates: start: 2013
  6. ZARATOR [Concomitant]
     Active Substance: ATORVASTATIN CALCIUM
     Indication: BLOOD CHOLESTEROL INCREASED
     Route: 065
     Dates: start: 2009
  7. MAREVAN [Concomitant]
     Active Substance: WARFARIN SODIUM
     Indication: ANTICOAGULANT THERAPY
     Route: 065
     Dates: start: 2009
  8. TOUJEO [Suspect]
     Active Substance: INSULIN GLARGINE
     Dosage: DOSE:12 UNIT(S)
     Route: 051
     Dates: start: 20160829
  9. SOLOSTAR [Concomitant]
     Active Substance: DEVICE
  10. SOLOSTAR [Concomitant]
     Active Substance: DEVICE
  11. NOVORAPID [Concomitant]
     Active Substance: INSULIN ASPART
     Indication: TYPE 2 DIABETES MELLITUS
     Dosage: 8 UNITS AT BREAKFAST
     Route: 065
     Dates: start: 20161122, end: 20170328
  12. SELOZOK [Concomitant]
     Active Substance: METOPROLOL SUCCINATE
     Indication: BLOOD PRESSURE MEASUREMENT
     Dates: start: 2013
  13. TOUJEO [Suspect]
     Active Substance: INSULIN GLARGINE
     Dosage: DOSE:72 UNIT(S)
     Route: 051
  14. TOUJEO [Suspect]
     Active Substance: INSULIN GLARGINE
     Route: 051
  15. SPIRON (SPIRONOLACTONE) [Concomitant]
     Active Substance: SPIRONOLACTONE
     Indication: DIURETIC THERAPY
     Route: 065
     Dates: start: 2013

REACTIONS (8)
  - Death [Fatal]
  - Blood glucose fluctuation [Unknown]
  - Fall [Unknown]
  - Blood pressure abnormal [Unknown]
  - Haematoma [Unknown]
  - Glycosylated haemoglobin decreased [Unknown]
  - Blood glucose increased [Unknown]
  - Hypoglycaemia [Unknown]

NARRATIVE: CASE EVENT DATE: 20170328
